FAERS Safety Report 7220115-2 (Version None)
Quarter: 2011Q1

REPORT INFORMATION
  Report Type: 
  Country: None (occurrence: None)
  Receive Date: 20110111
  Receipt Date: 20110105
  Transmission Date: 20110831
  Serious: Yes (Other)
  Sender: FDA-Public Use
  Company Number: D0067533A

PATIENT
  Sex: Female
  Weight: 53 kg

DRUGS (5)
  1. IMUREK [Suspect]
     Indication: SYSTEMIC LUPUS ERYTHEMATOSUS
     Dosage: 100MG PER DAY
     Route: 048
  2. ARIXTRA [Suspect]
     Indication: THROMBOSIS
     Dosage: 5MG PER DAY
     Route: 065
     Dates: start: 20100217, end: 20100425
  3. PREDNISOLONE [Concomitant]
     Route: 065
  4. ENALAPRIL MALEATE [Concomitant]
     Route: 065
  5. QUENSYL [Concomitant]
     Route: 065

REACTIONS (3)
  - DRUG LEVEL DECREASED [None]
  - DRUG INTERACTION [None]
  - SYSTEMIC LUPUS ERYTHEMATOSUS [None]
